FAERS Safety Report 10477664 (Version 1)
Quarter: 2014Q3

REPORT INFORMATION
  Report Type: Spontaneous
  Country: GB (occurrence: None)
  Receive Date: 20140924
  Receipt Date: 20140924
  Transmission Date: 20150326
  Serious: Yes (Life-Threatening)
  Sender: FDA-Public Use
  Company Number: 2014/070

PATIENT
  Age: 52 Year
  Sex: Female

DRUGS (1)
  1. CETIRIZINE [Suspect]
     Active Substance: CETIRIZINE HYDROCHLORIDE
     Indication: URTICARIA
     Dosage: 2 MG (5 MG/5 ML OF CETIRIZINE HYDROCHLORIDE)
     Route: 048

REACTIONS (2)
  - Drug hypersensitivity [None]
  - Anaphylactic reaction [None]
